FAERS Safety Report 9521796 (Version 2)
Quarter: 2021Q4

REPORT INFORMATION
  Report Type: Report from Study
  Country: AU (occurrence: AU)
  Receive Date: 20130913
  Receipt Date: 20211018
  Transmission Date: 20220303
  Serious: Yes (Other)
  Sender: FDA-Public Use
  Company Number: PHHY2013AU100942

PATIENT
  Age: 50 Year
  Sex: Male

DRUGS (1)
  1. IMATINIB. [Suspect]
     Active Substance: IMATINIB MESYLATE
     Indication: Desmoid tumour
     Dosage: 400 MG, QD
     Route: 048
     Dates: start: 20131001

REACTIONS (3)
  - Sepsis [Unknown]
  - Renal impairment [Unknown]
  - Gastric polyps [Unknown]

NARRATIVE: CASE EVENT DATE: 20150201
